FAERS Safety Report 8817307 (Version 1)
Quarter: 2012Q4

REPORT INFORMATION
  Report Type: 
  Country: US (occurrence: US)
  Receive Date: 20121004
  Receipt Date: 20121004
  Transmission Date: 20130627
  Serious: Yes (Life-Threatening)
  Sender: FDA-Public Use
  Company Number: US-MERCK-1210USA001485

PATIENT
  Age: 68 Year
  Sex: Female
  Weight: 120 kg

DRUGS (12)
  1. VORINOSTAT [Suspect]
     Indication: DIFFUSE LARGE B-CELL LYMPHOMA
     Dosage: 400 mg, on days 1-5
     Route: 048
     Dates: start: 20120619
  2. VORINOSTAT [Suspect]
     Dosage: 400 mg, on days 1-5
     Route: 048
     Dates: start: 20120821, end: 20120825
  3. RITUXIMAB [Suspect]
     Indication: DIFFUSE LARGE B-CELL LYMPHOMA
     Dosage: 375 mg/m2 on day 3
     Route: 042
     Dates: start: 20120621, end: 20120621
  4. RITUXIMAB [Suspect]
     Dosage: 375 mg/m2 on day 3
     Route: 042
     Dates: start: 20120823, end: 20120823
  5. CYCLOPHOSPHAMIDE [Suspect]
     Indication: DIFFUSE LARGE B-CELL LYMPHOMA
     Dosage: 750 mg/m2 over 30-60 minutes on day 3
     Route: 042
     Dates: start: 20120621, end: 20120621
  6. CYCLOPHOSPHAMIDE [Suspect]
     Dosage: 750 mg/m2 over 30-60 minutes on day 3
     Route: 042
     Dates: start: 20120823, end: 20120823
  7. DOXORUBICIN [Suspect]
     Indication: DIFFUSE LARGE B-CELL LYMPHOMA
     Dosage: 50 mg/m2 on day 3 IVP
     Route: 042
     Dates: start: 20120621, end: 20120621
  8. DOXORUBICIN [Suspect]
     Dosage: 50 mg/m2 on day 3 IVP
     Route: 042
     Dates: start: 20120823, end: 20120823
  9. VINCRISTINE SULFATE [Suspect]
     Indication: DIFFUSE LARGE B-CELL LYMPHOMA
     Dosage: 1.4 mg/m2 on day 3
     Route: 042
     Dates: start: 20120621, end: 20120621
  10. VINCRISTINE SULFATE [Suspect]
     Dosage: 1.4 mg/m2 on day 3
     Route: 042
     Dates: start: 20120823, end: 20120823
  11. UNSPECIFIED INGREDIENT [Suspect]
     Indication: DIFFUSE LARGE B-CELL LYMPHOMA
     Dosage: 100 mg on days 3-7
     Route: 048
     Dates: start: 20120621
  12. UNSPECIFIED INGREDIENT [Suspect]
     Dosage: 100 mg on days 3-7
     Route: 048
     Dates: start: 20120823, end: 20120827

REACTIONS (4)
  - Neutrophil count decreased [Recovered/Resolved]
  - Platelet count decreased [Recovered/Resolved]
  - Neutropenia [None]
  - Thrombocytopenia [None]
